FAERS Safety Report 11706586 (Version 1)
Quarter: 2015Q4

REPORT INFORMATION
  Report Type: Report from Study
  Country: US (occurrence: US)
  Receive Date: 20151106
  Receipt Date: 20151106
  Transmission Date: 20160304
  Serious: Yes (Hospitalization)
  Sender: FDA-Public Use
  Company Number: US-JNJFOC-20150921127

PATIENT
  Age: 78 Year
  Sex: Female
  Weight: 67.59 kg

DRUGS (1)
  1. REMICADE [Suspect]
     Active Substance: INFLIXIMAB
     Indication: ARTHRITIS
     Route: 042
     Dates: end: 20150802

REACTIONS (6)
  - Malaise [Unknown]
  - Procedural pain [Not Recovered/Not Resolved]
  - Abnormal loss of weight [Unknown]
  - Off label use [Unknown]
  - Adverse event [Unknown]
  - Pancreatic neoplasm [Not Recovered/Not Resolved]

NARRATIVE: CASE EVENT DATE: 2015
